FAERS Safety Report 11571200 (Version 1)
Quarter: 2015Q3

REPORT INFORMATION
  Report Type: Spontaneous
  Country: US (occurrence: US)
  Receive Date: 20150916
  Receipt Date: 20150916
  Transmission Date: 20151125
  Serious: No
  Sender: FDA-Public Use
  Company Number: US-ELI_LILLY_AND_COMPANY-US200909005073

PATIENT
  Sex: Female

DRUGS (3)
  1. FORTEO [Suspect]
     Active Substance: TERIPARATIDE
     Dates: start: 20090627, end: 20090629
  2. FORTEO [Suspect]
     Active Substance: TERIPARATIDE
     Dates: start: 20090717, end: 2009
  3. FORTEO [Suspect]
     Active Substance: TERIPARATIDE
     Dates: start: 2009

REACTIONS (6)
  - Nausea [Unknown]
  - Palpitations [Recovered/Resolved]
  - Abdominal discomfort [Unknown]
  - Asthenia [Recovering/Resolving]
  - Heart rate increased [Unknown]
  - Injection site haemorrhage [Unknown]

NARRATIVE: CASE EVENT DATE: 2009
